FAERS Safety Report 25234514 (Version 1)
Quarter: 2025Q2

REPORT INFORMATION
  Report Type: Spontaneous
  Country: KR (occurrence: KR)
  Receive Date: 20250424
  Receipt Date: 20250424
  Transmission Date: 20250716
  Serious: Yes (Other)
  Sender: MYLAN
  Company Number: KR-MYLANLABS-2025M1034713

PATIENT
  Sex: Female

DRUGS (1)
  1. ZELDOX [Suspect]
     Active Substance: ZIPRASIDONE
     Indication: Product used for unknown indication

REACTIONS (2)
  - Electrocardiogram QT prolonged [Unknown]
  - Arrhythmia [Unknown]
